FAERS Safety Report 7325649-8 (Version None)
Quarter: 2011Q1

REPORT INFORMATION
  Report Type: 
  Country: None (occurrence: None)
  Receive Date: 20110216
  Receipt Date: 20110207
  Transmission Date: 20110831
  Serious: Yes (Hospitalization)
  Sender: FDA-Public Use
  Company Number: WSDF_00745

PATIENT
  Sex: Male
  Weight: 27.5 kg

DRUGS (1)
  1. WINRHO SDF LIQUID [Suspect]
     Indication: IDIOPATHIC THROMBOCYTOPENIC PURPURA
     Dosage: (72.73 UG/KG TOTAL INTRAVENOUS (NOT OTHERWISE SPECIFIED)
     Route: 042
     Dates: start: 20080726, end: 20080726

REACTIONS (6)
  - HAEMATURIA [None]
  - CHILLS [None]
  - OVERDOSE [None]
  - INCORRECT DRUG DOSAGE FORM ADMINISTERED [None]
  - VOMITING [None]
  - PYREXIA [None]
